FAERS Safety Report 8510901-0 (Version None)
Quarter: 2012Q3

REPORT INFORMATION
  Report Type: 
  Country: None (occurrence: None)
  Receive Date: 20120716
  Receipt Date: 20120710
  Transmission Date: 20120928
  Serious: Yes (Death, Hospitalization)
  Sender: FDA-Public Use
  Company Number: US-CELGENEUS-163-21880-11031129

PATIENT
  Sex: Male
  Weight: 98.518 kg

DRUGS (22)
  1. ACETAMINOPHEN [Concomitant]
     Dosage: 1000 MILLIGRAM
     Route: 048
  2. SINGULAIR [Concomitant]
     Dosage: 10 MILLIGRAM
     Route: 048
  3. VFEND [Concomitant]
     Dosage: 200 MILLIGRAM
     Route: 065
  4. ADVAIR DISKUS 100/50 [Concomitant]
     Dosage: 250-50MCG
     Route: 055
  5. CALCIUM WITH VITAMIN D [Concomitant]
     Dosage: 600-200MG
     Route: 048
  6. FISH OIL [Concomitant]
     Dosage: 1
     Route: 048
  7. ZOLPIDEM [Concomitant]
     Indication: INSOMNIA
     Dosage: 1-2
     Route: 048
  8. ALLOPURINOL [Concomitant]
     Dosage: 300 MILLIGRAM
     Route: 048
  9. DILAUDID [Concomitant]
     Indication: PAIN
     Dosage: 4 MILLIGRAM
     Route: 048
  10. REVLIMID [Suspect]
     Dosage: 10 MILLIGRAM
     Route: 048
     Dates: start: 20110212, end: 20110221
  11. CEFDINIR [Concomitant]
     Dosage: 300 MILLIGRAM
     Route: 048
  12. LASIX [Concomitant]
     Dosage: 40 MILLIGRAM
     Route: 065
  13. SPIRIVA [Concomitant]
     Dosage: 18 MICROGRAM
     Route: 055
  14. ZYRTEC [Concomitant]
     Dosage: 10 MILLIGRAM
     Route: 048
  15. MAXZIDE [Concomitant]
     Dosage: 75-50MG
     Route: 048
  16. ALBUTEROL SULFATE [Concomitant]
     Dosage: 5MG/ML
     Route: 055
  17. MULTI-VITAMINS [Concomitant]
     Dosage: 1 TABLET
     Route: 048
  18. ARANESP [Concomitant]
     Dosage: 300 MICROGRAM
     Route: 058
  19. ATENOLOL [Concomitant]
     Dosage: 25 MILLIGRAM
     Route: 048
  20. OMEPRAZOLE [Concomitant]
     Dosage: 40 MILLIGRAM
     Route: 048
  21. VICODIN [Concomitant]
     Indication: PAIN
     Dosage: 5/500MG
     Route: 065
  22. PROCHLORPERAZINE MALEATE [Concomitant]
     Indication: NAUSEA
     Dosage: 10 MILLIGRAM
     Route: 048

REACTIONS (5)
  - NEUTROPENIA [None]
  - MYELODYSPLASTIC SYNDROME [None]
  - FUNGAL INFECTION [None]
  - ENTEROCOCCAL INFECTION [None]
  - ANAEMIA [None]
